FAERS Safety Report 7069995-4 (Version None)
Quarter: 2010Q4

REPORT INFORMATION
  Report Type: 
  Country: None (occurrence: None)
  Receive Date: 20101028
  Receipt Date: 20100712
  Transmission Date: 20110411
  Serious: No
  Sender: FDA-Public Use
  Company Number: US-WYE-H16358910

PATIENT
  Age: 82 Year
  Sex: Female
  Weight: 93.07 kg

DRUGS (4)
  1. ADVIL [Suspect]
     Indication: BACK PAIN
     Route: 048
     Dates: start: 20100708, end: 20100711
  2. ALLOPURINOL [Concomitant]
  3. ACETYLSALICYLIC ACID [Concomitant]
  4. DIOVAN [Concomitant]

REACTIONS (2)
  - ABDOMINAL DISCOMFORT [None]
  - NOCTURIA [None]
